FAERS Safety Report 6588086-X (Version None)
Quarter: 2010Q1

REPORT INFORMATION
  Report Type: 
  Country: None (occurrence: None)
  Receive Date: 20100202
  Receipt Date: 20090831
  Transmission Date: 20100710
  Serious: No
  Sender: FDA-Public Use
  Company Number: 2009-00584

PATIENT
  Sex: Female
  Weight: 81.6475 kg

DRUGS (1)
  1. ZICAM COLD REMEDY ORAL MIST [Suspect]
     Dosage: QID FOR 3 DAYS
     Dates: start: 20090827, end: 20090830

REACTIONS (1)
  - AGEUSIA [None]
